FAERS Safety Report 14456599 (Version 1)
Quarter: 2018Q1

REPORT INFORMATION
  Report Type: Spontaneous
  Country: US (occurrence: US)
  Receive Date: 20180129
  Receipt Date: 20180129
  Transmission Date: 20180509
  Serious: Yes (Life-Threatening)
  Sender: FDA-Public Use
  Company Number: None

PATIENT
  Age: 44 Year
  Sex: Female
  Weight: 88.45 kg

DRUGS (2)
  1. ORBACTIV [Suspect]
     Active Substance: ORITAVANCIN
     Indication: STAPHYLOCOCCAL INFECTION
     Dosage: 1200MG Q10D IV
     Route: 042
     Dates: start: 201711, end: 201712
  2. ORBACTIV [Suspect]
     Active Substance: ORITAVANCIN
     Indication: EXTRADURAL ABSCESS
     Dosage: 1200MG Q10D IV
     Route: 042
     Dates: start: 201711, end: 201712

REACTIONS (5)
  - Hyperhidrosis [None]
  - Nausea [None]
  - Vomiting [None]
  - Chest pain [None]
  - Pain [None]

NARRATIVE: CASE EVENT DATE: 20171214
